FAERS Safety Report 15264720 (Version 1)
Quarter: 2018Q3

REPORT INFORMATION
  Report Type: Spontaneous
  Country: US (occurrence: US)
  Receive Date: 20180723
  Receipt Date: 20180723
  Transmission Date: 20181010
  Serious: Yes (Hospitalization)
  Sender: FDA-Public Use
  Company Number: None

PATIENT
  Sex: Female

DRUGS (2)
  1. NO MED LIST AVAILABLE [Concomitant]
  2. EUFLEXXA [Suspect]
     Active Substance: HYALURONATE SODIUM
     Indication: OSTEOARTHRITIS

REACTIONS (1)
  - Blood iron decreased [None]
